FAERS Safety Report 19647836 (Version 1)
Quarter: 2021Q3

REPORT INFORMATION
  Report Type: Report from Study
  Country: FR (occurrence: FR)
  Receive Date: 20210802
  Receipt Date: 20210802
  Transmission Date: 20211014
  Serious: Yes (Hospitalization, Other)
  Sender: FDA-Public Use
  Company Number: FR-BAYER-2021-185015

PATIENT
  Age: 47 Year
  Sex: Male

DRUGS (5)
  1. IOPROMIDE. [Suspect]
     Active Substance: IOPROMIDE
  2. ACICLOVIR [Concomitant]
     Active Substance: ACYCLOVIR
  3. VALACICLOVIR [Concomitant]
     Active Substance: VALACYCLOVIR HYDROCHLORIDE
  4. CEFTRIAXON [Concomitant]
     Active Substance: CEFTRIAXONE
  5. ATOVAQUONE. [Concomitant]
     Active Substance: ATOVAQUONE

REACTIONS (1)
  - Acute generalised exanthematous pustulosis [None]
